FAERS Safety Report 4774851-8 (Version None)
Quarter: 2005Q3

REPORT INFORMATION
  Report Type: 
  Country: None (occurrence: None)
  Receive Date: 20050919
  Receipt Date: 20050912
  Transmission Date: 20060218
  Serious: Yes (Life-Threatening, Hospitalization)
  Sender: FDA-Public Use
  Company Number: 2005-07-1760

PATIENT
  Age: 21 Year
  Sex: Male

DRUGS (3)
  1. PEG-INTRON [Suspect]
     Indication: HEPATITIS C
     Dosage: 100MCG QW SUBCUTANEOUS
     Route: 058
     Dates: start: 20050201
  2. SERTRALINE HCL [Concomitant]
  3. MIRTAZAPINE [Concomitant]

REACTIONS (1)
  - PULMONARY EMBOLISM [None]
